FAERS Safety Report 10255132 (Version 1)
Quarter: 2014Q2

REPORT INFORMATION
  Report Type: Spontaneous
  Country: US (occurrence: US)
  Receive Date: 20140624
  Receipt Date: 20140624
  Transmission Date: 20141212
  Serious: No
  Sender: FDA-Public Use
  Company Number: US-B.I. PHARMACEUTICALS,INC./RIDGEFIELD-2014-BI-27189BP

PATIENT
  Age: 59 Year
  Sex: Female
  Weight: 104.32 kg

DRUGS (3)
  1. MELOXICAM [Suspect]
     Indication: ARTHRITIS
     Dosage: 50 MG
     Route: 065
     Dates: start: 20140529
  2. HYDROCHLOROTHIAZIDE [Concomitant]
     Indication: DIURETIC THERAPY
     Dosage: 50 MG
     Route: 065
  3. KLOR-CON [Concomitant]
     Route: 065

REACTIONS (3)
  - Arthritis [Not Recovered/Not Resolved]
  - Back disorder [Not Recovered/Not Resolved]
  - Musculoskeletal discomfort [Not Recovered/Not Resolved]
